FAERS Safety Report 16218872 (Version 1)
Quarter: 2019Q2

REPORT INFORMATION
  Report Type: Report from Study
  Country: EG (occurrence: EG)
  Receive Date: 20190419
  Receipt Date: 20190419
  Transmission Date: 20190711
  Serious: Yes (Death, Hospitalization, Other)
  Sender: FDA-Public Use
  Company Number: PHHY2019EG089704

PATIENT
  Age: 79 Year
  Sex: Female

DRUGS (1)
  1. ANASTROZOLE. [Suspect]
     Active Substance: ANASTROZOLE
     Indication: BREAST CANCER
     Dosage: 1 MG, QD
     Route: 048
     Dates: start: 20181127

REACTIONS (8)
  - Hypoxia [Unknown]
  - Death [Fatal]
  - Concomitant disease progression [Unknown]
  - Pleural effusion [Unknown]
  - Dyspnoea [Unknown]
  - Osteoporosis [Unknown]
  - Cardiac hypertrophy [Unknown]
  - Lung disorder [Unknown]

NARRATIVE: CASE EVENT DATE: 201811
